FAERS Safety Report 25751519 (Version 1)
Quarter: 2025Q3

REPORT INFORMATION
  Report Type: Spontaneous
  Country: CH (occurrence: CH)
  Receive Date: 20250902
  Receipt Date: 20250902
  Transmission Date: 20251021
  Serious: Yes (Disabling, Other)
  Sender: GALDERMA
  Company Number: CH-GALDERMA-CH2025015817

PATIENT

DRUGS (1)
  1. NEMLUVIO [Suspect]
     Active Substance: NEMOLIZUMAB-ILTO
     Indication: Neurodermatitis
     Route: 058
     Dates: start: 20250710, end: 20250710

REACTIONS (2)
  - Rash macular [Recovering/Resolving]
  - Disability [Recovering/Resolving]

NARRATIVE: CASE EVENT DATE: 20250714
